FAERS Safety Report 8031105-4 (Version None)
Quarter: 2012Q1

REPORT INFORMATION
  Report Type: 
  Country: None (occurrence: None)
  Receive Date: 20120109
  Receipt Date: 20120103
  Transmission Date: 20120608
  Serious: Yes (Other)
  Sender: FDA-Public Use
  Company Number: ES-BRISTOL-MYERS SQUIBB COMPANY-16334005

PATIENT
  Age: 70 Year
  Sex: Male
  Weight: 92 kg

DRUGS (3)
  1. CARBOPLATIN [Suspect]
     Indication: LIP AND/OR ORAL CAVITY CANCER
     Dosage: 1 DF =STRENGTH:10MG/ML
     Route: 042
     Dates: start: 20110321, end: 20110321
  2. FLUOROURACIL [Suspect]
     Indication: LIP AND/OR ORAL CAVITY CANCER
     Dosage: 1DF = STRENGTH:50MG/ML FLUOROURACIL FERRER FARMA
     Route: 042
     Dates: start: 20110321, end: 20110321
  3. ERBITUX [Suspect]
     Indication: HEAD AND NECK CANCER
     Route: 042
     Dates: start: 20110321, end: 20110321

REACTIONS (1)
  - LARYNGEAL OEDEMA [None]
